FAERS Safety Report 10682632 (Version 1)
Quarter: 2014Q4

REPORT INFORMATION
  Report Type: Spontaneous
  Country: US (occurrence: None)
  Receive Date: 20141209
  Receipt Date: 20141209
  Transmission Date: 20150529
  Serious: Yes (Other)
  Sender: FDA-Public Use
  Company Number: 399608

PATIENT
  Age: 63 Year
  Sex: Male
  Weight: 125.2 kg

DRUGS (2)
  1. LEVEMIR FLEXPEN (INSULIN DETERMIR) SOLUTION FOR INJECTION [Concomitant]
  2. NOVOLOG [Suspect]
     Active Substance: INSULIN ASPART
     Indication: TYPE 2 DIABETES MELLITUS
     Dosage: 30 U, TID (PRIOR TO BREAKFAST, LUNCH, AND DINNER), SUBCUTANEOUS
     Route: 058
     Dates: start: 20140111, end: 20140111

REACTIONS (8)
  - Drug prescribing error [None]
  - Hypoglycaemic unconsciousness [None]
  - Eye swelling [None]
  - Joint swelling [None]
  - Pharyngeal oedema [None]
  - Flushing [None]
  - Arthralgia [None]
  - Rash [None]

NARRATIVE: CASE EVENT DATE: 20140111
